FAERS Safety Report 18278379 (Version 1)
Quarter: 2020Q3

REPORT INFORMATION
  Report Type: Spontaneous
  Country: US (occurrence: US)
  Receive Date: 20200917
  Receipt Date: 20200917
  Transmission Date: 20201103
  Serious: Yes (Other)
  Sender: FDA-Public Use
  Company Number: US-AMERICAN REGENT INC-2020001866

PATIENT
  Age: 47 Year
  Sex: Male

DRUGS (7)
  1. NOREPINEPHRINE. [Suspect]
     Active Substance: NOREPINEPHRINE
     Indication: SHOCK
     Dosage: UNK
     Route: 042
  2. METFORMIN [Concomitant]
     Active Substance: METFORMIN HYDROCHLORIDE
     Indication: PRODUCT USED FOR UNKNOWN INDICATION
     Dosage: 1000 MILLIGRAM, BID
     Route: 048
  3. VASOPRESSIN INJECTION, USP [Suspect]
     Active Substance: VASOPRESSIN
     Indication: SHOCK
     Dosage: UNK
     Route: 042
  4. PHENYLEPHRINE HCL [Suspect]
     Active Substance: PHENYLEPHRINE HYDROCHLORIDE
     Indication: SHOCK
     Dosage: UNK
     Route: 042
  5. EPINEPHRINE                        /00003902/ [Suspect]
     Active Substance: EPINEPHRINE HYDROCHLORIDE
     Dosage: UNK
     Route: 042
  6. METFORMIN [Concomitant]
     Active Substance: METFORMIN HYDROCHLORIDE
     Dosage: 90 GRAM
     Route: 048
  7. EPINEPHRINE                        /00003902/ [Suspect]
     Active Substance: EPINEPHRINE HYDROCHLORIDE
     Indication: SHOCK
     Dosage: 200 MICROGRAM

REACTIONS (2)
  - Drug ineffective [Recovered/Resolved]
  - Shock [Recovered/Resolved]
